FAERS Safety Report 24614617 (Version 1)
Quarter: 2024Q4

REPORT INFORMATION
  Report Type: Spontaneous
  Country: US (occurrence: US)
  Receive Date: 20241113
  Receipt Date: 20241113
  Transmission Date: 20250114
  Serious: No
  Sender: PFIZER
  Company Number: US-PFIZER INC-202400298186

PATIENT
  Age: 42 Year
  Sex: Female

DRUGS (2)
  1. XELJANZ XR [Suspect]
     Active Substance: TOFACITINIB CITRATE
     Dosage: 11 MG, DAILY (EVERY DAY)
     Dates: start: 20240422
  2. LYRICA [Concomitant]
     Active Substance: PREGABALIN
     Dosage: 100 MG

REACTIONS (3)
  - Condition aggravated [Not Recovered/Not Resolved]
  - Lymphadenopathy [Unknown]
  - Lymph node pain [Unknown]

NARRATIVE: CASE EVENT DATE: 20241101
